FAERS Safety Report 9964435 (Version 3)
Quarter: 2015Q1

REPORT INFORMATION
  Report Type: Spontaneous
  Country: HU (occurrence: HU)
  Receive Date: 20140305
  Receipt Date: 20150121
  Transmission Date: 20150721
  Serious: Yes (Hospitalization)
  Sender: FDA-Public Use
  Company Number: HU-VERTEX PHARMACEUTICALS INC-2014-001110

PATIENT
  Age: 65 Year
  Sex: Female
  Weight: 69 kg

DRUGS (20)
  1. RIBAVIRIN. [Suspect]
     Active Substance: RIBAVIRIN
     Dosage: 400 MG, QD
     Route: 048
     Dates: start: 20130919, end: 20130919
  2. DESLORATADINE. [Concomitant]
     Active Substance: DESLORATADINE
     Indication: PRURITUS
     Dosage: ITCHING SKIN LESIONS
     Route: 048
     Dates: start: 20131022, end: 20131030
  3. LOSARTAN [Concomitant]
     Active Substance: LOSARTAN
     Indication: HYPERTENSION
     Dosage: 25 MG, 4 TIMES A DAY
     Route: 048
     Dates: start: 2009, end: 20140101
  4. BACILLUS CLAUSII [Concomitant]
     Active Substance: PROBIOTICS NOS
     Indication: GASTROENTERITIS
     Dosage: 2 BILLION/5ML
     Route: 048
     Dates: start: 20130821, end: 20130823
  5. DIOSMECTITE [Concomitant]
     Active Substance: MONTMORILLONITE
     Indication: DIARRHOEA
  6. DIOSMECTITE [Concomitant]
     Active Substance: MONTMORILLONITE
     Indication: PYREXIA
  7. RIBAVIRIN. [Suspect]
     Active Substance: RIBAVIRIN
     Indication: CHRONIC HEPATITIS C
     Dosage: 1000 MG, QD
     Route: 048
     Dates: start: 20130814, end: 20130912
  8. CLOBETASOL PROPIONATE. [Concomitant]
     Active Substance: CLOBETASOL PROPIONATE
     Indication: PRURITUS
     Dosage: DAILY DOSE 0.5/1G 1-2 TIMES
     Route: 061
     Dates: start: 20131022, end: 20131030
  9. FAMOTIDINE. [Concomitant]
     Active Substance: FAMOTIDINE
     Indication: ABDOMINAL PAIN UPPER
     Dosage: 40 MG, BID
     Route: 048
     Dates: start: 20130905
  10. DIOSMECTITE [Concomitant]
     Active Substance: MONTMORILLONITE
     Indication: VOMITING
     Dosage: 3 G, QD
     Route: 048
     Dates: start: 20130821, end: 20130823
  11. SMECTA [Concomitant]
     Active Substance: MONTMORILLONITE
     Indication: GASTROENTERITIS
     Dosage: 3 G, QD
     Route: 048
     Dates: start: 20130821, end: 20130823
  12. RIBAVIRIN. [Suspect]
     Active Substance: RIBAVIRIN
     Dosage: 800 MG, QD
     Route: 048
     Dates: start: 20130913, end: 20130918
  13. RIBAVIRIN. [Suspect]
     Active Substance: RIBAVIRIN
     Dosage: 200 MG, QD
     Route: 048
     Dates: start: 20130920, end: 20140108
  14. RIBAVIRIN. [Suspect]
     Active Substance: RIBAVIRIN
     Dosage: 500 MG, QD
     Route: 048
     Dates: start: 20140109, end: 20140225
  15. BISOPROLOL [Concomitant]
     Active Substance: BISOPROLOL
     Indication: HYPERTENSION
     Dosage: 2.5 MG, 4 TIMES A DAY
     Route: 048
     Dates: start: 2009, end: 20140101
  16. INCIVO [Suspect]
     Active Substance: TELAPREVIR
     Indication: CHRONIC HEPATITIS C
     Dosage: 1125 MG, BID
     Route: 048
     Dates: start: 20130814, end: 20131106
  17. RIBAVIRIN. [Suspect]
     Active Substance: RIBAVIRIN
     Dosage: 800 MG, QD
     Route: 048
     Dates: start: 20140226, end: 20140716
  18. PEGINTERFERON ALFA-2A [Suspect]
     Active Substance: PEGINTERFERON ALFA-2A
     Indication: CHRONIC HEPATITIS C
     Dosage: 180 ?G, QW
     Route: 058
     Dates: start: 20130814, end: 20140716
  19. PANTOPRAZOLE [Concomitant]
     Active Substance: PANTOPRAZOLE SODIUM
     Indication: ABDOMINAL PAIN UPPER
     Dosage: 40 MG, BID
     Route: 048
     Dates: start: 20130828, end: 20130905
  20. RED BLOOD CELL TRANSFUSION [Concomitant]
     Indication: ANAEMIA
     Dosage: 8 DF, BID
     Route: 042
     Dates: start: 20130927, end: 20130930

REACTIONS (1)
  - Eczema [Recovered/Resolved]

NARRATIVE: CASE EVENT DATE: 20131030
